FAERS Safety Report 5698406-6 (Version None)
Quarter: 2008Q2

REPORT INFORMATION
  Report Type: 
  Country: None (occurrence: None)
  Receive Date: 20080403
  Receipt Date: 20080318
  Transmission Date: 20081010
  Serious: Yes (Other)
  Sender: FDA-Public Use
  Company Number: S08-FRA-00859-01

PATIENT
  Age: 85 Year
  Sex: Male
  Weight: 73.5 kg

DRUGS (5)
  1. MEMANTINE HCL [Suspect]
     Indication: DEMENTIA ALZHEIMER'S TYPE
     Dosage: 5 MG BID PO
     Route: 048
     Dates: start: 20070912, end: 20080114
  2. ATORVASTATIN CALCIUM [Concomitant]
  3. KARDEGIC(ACETYLSALICYLATE LYSINE) [Concomitant]
  4. IRBESARTAN [Concomitant]
  5. BEROCCA (VITAMIN B-COMPLEX) [Concomitant]

REACTIONS (3)
  - CUTANEOUS VASCULITIS [None]
  - DERMATITIS CONTACT [None]
  - TOXIC SKIN ERUPTION [None]
